FAERS Safety Report 8942587 (Version 1)
Quarter: 2012Q4

REPORT INFORMATION
  Report Type: Spontaneous
  Country: TR (occurrence: None)
  Receive Date: 20121123
  Receipt Date: 20121123
  Transmission Date: 20130627
  Serious: Yes (Death, Other)
  Sender: FDA-Public Use
  Company Number: 2012-19806

PATIENT
  Age: 76 Year
  Sex: Male

DRUGS (3)
  1. VERAPAMIL HYDROCHLORIDE (WATSON LABORATORIES) (VERAPAMIL HYDROCHLORIDE) UNKNOWN, UNK UNK [Suspect]
     Indication: PRODUCT USED FOR UNKNOWN INDICATION
     Dosage: UNK UNK, tid, Unknown
duration 15 days
  2. COLCHICINE (COLCHICINE) [Suspect]
     Indication: GOUT
     Dosage: 1 mg,  tid,  Unknown
  3. REPAGLINIDE (REPAGLINIDE) [Suspect]
     Indication: TYPE 2 DIABETES MELLITUS
     Dosage: 0.5 mg, tid, Unknown

REACTIONS (14)
  - Multi-organ failure [None]
  - Systemic inflammatory response syndrome [None]
  - Respiratory failure [None]
  - Sepsis [None]
  - Overdose [None]
  - Drug interaction [None]
  - Diarrhoea [None]
  - Anuria [None]
  - Blood urea increased [None]
  - Blood creatinine increased [None]
  - Bicytopenia [None]
  - Metabolic acidosis [None]
  - Alanine aminotransferase increased [None]
  - Aspartate aminotransferase increased [None]
